FAERS Safety Report 6637662-4 (Version None)
Quarter: 2010Q1

REPORT INFORMATION
  Report Type: 
  Country: None (occurrence: None)
  Receive Date: 20100317
  Receipt Date: 20100302
  Transmission Date: 20100710
  Serious: Yes (Other)
  Sender: FDA-Public Use
  Company Number: US-TYCO HEALTHCARE/MALLINCKRODT-T201000813

PATIENT
  Sex: Male

DRUGS (1)
  1. FENTANYL [Suspect]
     Dosage: UNK
     Route: 062

REACTIONS (1)
  - ACCIDENTAL EXPOSURE [None]
